FAERS Safety Report 10341008 (Version 2)
Quarter: 2014Q3

REPORT INFORMATION
  Report Type: Spontaneous
  Country: US (occurrence: US)
  Receive Date: 20140724
  Receipt Date: 20140724
  Transmission Date: 20150326
  Serious: No
  Sender: FDA-Public Use
  Company Number: US-MYLANLABS-2013S1023528

PATIENT
  Age: 42 Year
  Sex: Female
  Weight: 92.99 kg

DRUGS (3)
  1. LEVOTHYROXINE SODIUM TABLETS, USP [Suspect]
     Active Substance: LEVOTHYROXINE SODIUM
     Indication: HYPOTHYROIDISM
     Route: 048
     Dates: start: 201303, end: 201308
  2. SYNTHROID [Suspect]
     Active Substance: LEVOTHYROXINE SODIUM
     Indication: HYPOTHYROIDISM
     Route: 048
     Dates: start: 201308, end: 20131012
  3. ARMOUR THYROID [Suspect]
     Active Substance: THYROID, PORCINE\THYROID, UNSPECIFIED
     Indication: HYPOTHYROIDISM
     Route: 048
     Dates: start: 20131012, end: 20131015

REACTIONS (1)
  - Fluid retention [Not Recovered/Not Resolved]

NARRATIVE: CASE EVENT DATE: 201305
